FAERS Safety Report 21185055 (Version 1)
Quarter: 2022Q3

REPORT INFORMATION
  Report Type: Report from Study
  Country: CN (occurrence: CN)
  Receive Date: 20220808
  Receipt Date: 20220808
  Transmission Date: 20221026
  Serious: Yes (Other)
  Sender: FDA-Public Use
  Company Number: CN-BAXTER-2022BAX013420

PATIENT
  Age: 54 Year
  Sex: Male
  Weight: 85 kg

DRUGS (27)
  1. AMINO ACIDS\DEXTROSE\ELECTROLYTES NOS\SOYBEAN OIL [Suspect]
     Active Substance: AMINO ACIDS\DEXTROSE\ELECTROLYTES NOS\SOYBEAN OIL
     Dosage: 1500 ML, INFUSION RATE: 3ML/KG/H
     Route: 065
     Dates: start: 20210426, end: 20210507
  2. AMINO ACIDS\DEXTROSE\ELECTROLYTES NOS\SOYBEAN OIL [Suspect]
     Active Substance: AMINO ACIDS\DEXTROSE\ELECTROLYTES NOS\SOYBEAN OIL
     Dosage: 1500 ML, INFUSION RATE: 3ML/KG/H
     Route: 065
     Dates: start: 20210427, end: 20210427
  3. AMINO ACIDS\DEXTROSE\ELECTROLYTES NOS\SOYBEAN OIL [Suspect]
     Active Substance: AMINO ACIDS\DEXTROSE\ELECTROLYTES NOS\SOYBEAN OIL
     Dosage: 1500 ML, INFUSION RATE: 3ML/KG/H
     Route: 065
     Dates: start: 20210428, end: 20210428
  4. VITAMINS NOS [Concomitant]
     Active Substance: VITAMINS
     Indication: Drug therapy
     Dosage: 5 ML
     Route: 065
     Dates: start: 20210426, end: 20210507
  5. VITAMINS NOS [Concomitant]
     Active Substance: VITAMINS
     Dosage: 5 ML
     Route: 065
     Dates: start: 20210427, end: 20210427
  6. VITAMINS NOS [Concomitant]
     Active Substance: VITAMINS
     Dosage: 5 ML
     Route: 065
     Dates: start: 20210428, end: 20210428
  7. UNSPECIFIED INGREDIENT [Concomitant]
     Active Substance: UNSPECIFIED INGREDIENT
     Indication: Drug therapy
     Dosage: 70 ML
     Route: 065
     Dates: start: 20210426, end: 20210507
  8. UNSPECIFIED INGREDIENT [Concomitant]
     Active Substance: UNSPECIFIED INGREDIENT
     Dosage: 70 ML
     Route: 065
     Dates: start: 20210427, end: 20210427
  9. UNSPECIFIED INGREDIENT [Concomitant]
     Active Substance: UNSPECIFIED INGREDIENT
     Dosage: 70 ML
     Route: 065
     Dates: start: 20210428, end: 20210428
  10. INSULIN NOS [Concomitant]
     Active Substance: INSULIN NOS
     Indication: Drug therapy
     Dosage: 18 IU
     Route: 065
     Dates: start: 20210426, end: 20210507
  11. INSULIN NOS [Concomitant]
     Active Substance: INSULIN NOS
     Dosage: 18 IU
     Route: 065
     Dates: start: 20210427, end: 20210427
  12. INSULIN NOS [Concomitant]
     Active Substance: INSULIN NOS
     Dosage: 18 IU
     Route: 065
     Dates: start: 20210428, end: 20210428
  13. WATER [Concomitant]
     Active Substance: WATER
     Indication: Drug therapy
     Dosage: 10 ML
     Route: 065
     Dates: start: 20210426, end: 20210507
  14. 12 Vitamins [Concomitant]
     Indication: Vitamin supplementation
     Dosage: 5 ML, ONCE DAILY ROUTE: PERIPHERAL VEIN/CENTRAL VEIN)
     Route: 042
     Dates: start: 20210409
  15. TIOPRONIN [Concomitant]
     Active Substance: TIOPRONIN
     Indication: Prophylaxis
     Dosage: 0.2 G, ONCE DAILY, ROUTE: INTRAVENOUS(PERIPHERAL VEIN/CENTRAL VEIN)
     Route: 042
     Dates: start: 20210410, end: 20210413
  16. AMMONIUM GLYCYRRHIZATE\CYSTEINE [Concomitant]
     Active Substance: AMMONIUM GLYCYRRHIZATE\CYSTEINE
     Indication: Prophylaxis
     Dosage: 250 ML, ONCE DAILY, ROUTE: INTRAVENOUS(PERIPHERAL VEIN/CENTRAL VEIN)
     Route: 042
     Dates: start: 20210413, end: 20210424
  17. VITAMIN K1 [Concomitant]
     Active Substance: PHYTONADIONE
     Indication: Anticoagulant therapy
     Dosage: 10 MG, ONCE DAILY
     Route: 030
     Dates: start: 20210421, end: 20210424
  18. FRUCTOSE DIPHOSPHATE SODIUM [Concomitant]
     Indication: Supplementation therapy
     Dosage: 10 G, ONCE DAILY, ROUTE: INTRAVENOUS(PERIPHERAL VEIN/CENTRAL VEIN)
     Route: 042
     Dates: start: 20210422
  19. CEFTIZOXIME SODIUM [Concomitant]
     Active Substance: CEFTIZOXIME SODIUM
     Indication: Antiinflammatory therapy
     Dosage: 3 G, ONCE DAILY, ROUTE: INTRAVENOUS(PERIPHERAL VEIN/CENTRAL VEIN)
     Route: 042
     Dates: start: 20210422
  20. ILAPRAZOLE [Concomitant]
     Active Substance: ILAPRAZOLE
     Indication: Antacid therapy
     Dosage: 10 MG, TWICE DAILY, ROUTE: (PERIPHERAL VEIN/CENTRAL VEIN)
     Route: 042
     Dates: start: 20210425
  21. Long chain fat emulsion Injection (OO) [Concomitant]
     Indication: Nutritional supplementation
     Dosage: 250 ML, TWICE DAILY, (PERIPHERAL VEIN/ CENTRAL VEIN)
     Route: 042
     Dates: start: 20210426
  22. NADROPARIN CALCIUM [Concomitant]
     Active Substance: NADROPARIN CALCIUM
     Indication: Anticoagulant therapy
     Dosage: 4100 IU, ONCE DAILY
     Route: 058
     Dates: start: 20210426
  23. Morinidazole and Sodium Chloride [Concomitant]
     Indication: Antiinflammatory therapy
     Dosage: 0.5 G, ONCE DAILY, ROUTE: (PERIPHERAL VEIN/CENTRAL VEIN)
     Route: 042
     Dates: start: 20210426
  24. ALBUMIN HUMAN [Concomitant]
     Active Substance: ALBUMIN HUMAN
     Indication: Supplementation therapy
     Dosage: 20 G, ONCE DAILY, ROUTE: INTRAVENOUS(PERIPHERAL VEIN/CENTRAL VEIN)
     Route: 042
     Dates: start: 20210426
  25. PHLOROGLUCINOL [Concomitant]
     Active Substance: PHLOROGLUCINOL
     Indication: Tetany
     Dosage: 120 MG, ONCE DAILY,ROUTE: (PERIPHERAL VEIN/CENTRAL VEIN)
     Route: 042
     Dates: start: 20210425
  26. PHLOROGLUCINOL [Concomitant]
     Active Substance: PHLOROGLUCINOL
     Indication: Analgesic therapy
  27. Compound amino acid injection (18aa-vii) [Concomitant]
     Indication: Nutritional supplementation
     Dosage: 400 ML, ONCE DAILY, ROUTE: INTRAVENOUS(PERIPHERALVEIN/CENTRAL VEIN)
     Route: 042
     Dates: start: 20210419, end: 20210424

REACTIONS (1)
  - Intra-abdominal haemorrhage [Recovered/Resolved]

NARRATIVE: CASE EVENT DATE: 20210427
